FAERS Safety Report 8070324-8 (Version None)
Quarter: 2012Q1

REPORT INFORMATION
  Report Type: 
  Country: None (occurrence: None)
  Receive Date: 20120125
  Receipt Date: 20120120
  Transmission Date: 20120608
  Serious: Yes (Other)
  Sender: FDA-Public Use
  Company Number: US-PFIZER INC-2012017278

PATIENT
  Sex: Female
  Weight: 72.562 kg

DRUGS (8)
  1. LIPITOR [Suspect]
     Indication: BLOOD CHOLESTEROL INCREASED
     Dosage: 10 MG, 1X/DAY
     Route: 048
  2. LEVOTHYROXINE [Concomitant]
     Indication: HYPOTHYROIDISM
     Dosage: UNK
  3. ZESTRIL [Concomitant]
     Indication: HYPERTENSION
     Dosage: UNK
  4. CARVEDILOL [Concomitant]
     Indication: HYPERTENSION
     Dosage: UNK
  5. ACETYLSALICYLIC ACID [Concomitant]
     Dosage: UNK, 1X/DAY
  6. AMITRIPTYLINE [Concomitant]
     Dosage: UNK
  7. PRINIVIL [Concomitant]
     Indication: HYPERTENSION
     Dosage: UNK
  8. DICLOFENAC [Concomitant]
     Indication: ARTHRITIS
     Dosage: UNK

REACTIONS (1)
  - CHRONIC OBSTRUCTIVE PULMONARY DISEASE [None]
